FAERS Safety Report 7228936-7 (Version None)
Quarter: 2011Q1

REPORT INFORMATION
  Report Type: 
  Country: None (occurrence: None)
  Receive Date: 20110117
  Receipt Date: 20110114
  Transmission Date: 20110831
  Serious: Yes (Death, Other)
  Sender: FDA-Public Use
  Company Number: DE-BAYER-2011-001938

PATIENT

DRUGS (1)
  1. LEPIRUDIN [Suspect]

REACTIONS (7)
  - DEATH [None]
  - RENAL FAILURE [None]
  - INFECTION [None]
  - SEPSIS [None]
  - CEREBRAL HAEMORRHAGE [None]
  - LOW CARDIAC OUTPUT SYNDROME [None]
  - EMBOLISM ARTERIAL [None]
